FAERS Safety Report 17884820 (Version 16)
Quarter: 2021Q4

REPORT INFORMATION
  Report Type: Report from Study
  Country: US (occurrence: None)
  Receive Date: 20200611
  Receipt Date: 20211229
  Transmission Date: 20220303
  Serious: Yes (Hospitalization)
  Sender: FDA-Public Use
  Company Number: US-ROCHE-2617730

PATIENT
  Age: 70 Year
  Sex: Male
  Weight: 63.5 kg

DRUGS (23)
  1. POLATUZUMAB VEDOTIN [Suspect]
     Active Substance: POLATUZUMAB VEDOTIN
     Indication: Follicular lymphoma
     Dosage: DATE OF MOST RECENT DOSE OF POLATUZUMAB VEDOTIN PRIOR TO ONSET OF INFECTION-COVID + AND INFECTION -
     Route: 042
     Dates: start: 20180320
  2. OBINUTUZUMAB [Suspect]
     Active Substance: OBINUTUZUMAB
     Indication: Follicular lymphoma
     Dosage: DATE OF MOST RECENT DOSE OF OBINUTUZUMAB PRIOR TO ONSET OF INFECTION-COVID + AND INFECTION - PNEUMON
     Route: 042
     Dates: start: 20180320
  3. LENALIDOMIDE [Suspect]
     Active Substance: LENALIDOMIDE
     Indication: Follicular lymphoma
     Dosage: DATE OF MOST RECENT DOSE OF LENALIDOMIDE PRIOR TO ONSET OF INFECTION-COVID + AND INFECTION - PNEUMON
     Route: 048
     Dates: start: 20180320
  4. ASPIRIN [Concomitant]
     Active Substance: ASPIRIN
     Indication: Coronary artery disease
     Dates: start: 20180313
  5. FEXOFENADINE [Concomitant]
     Active Substance: FEXOFENADINE HYDROCHLORIDE
     Indication: Seasonal allergy
     Dates: start: 2017
  6. SINGULAIR [Concomitant]
     Active Substance: MONTELUKAST SODIUM
     Indication: Seasonal allergy
     Dates: start: 20160520
  7. AMLODIPINE [Concomitant]
     Active Substance: AMLODIPINE BESYLATE
     Indication: Hypertension
     Dates: start: 20151108
  8. TOPROL XL [Concomitant]
     Active Substance: METOPROLOL SUCCINATE
     Indication: Hypertension
     Dates: start: 20151002
  9. PRAVASTATIN [Concomitant]
     Active Substance: PRAVASTATIN
     Indication: Hyperlipidaemia
     Dates: start: 20151017
  10. IBUPROFEN [Concomitant]
     Active Substance: IBUPROFEN
     Indication: Myalgia
     Dates: start: 20180501
  11. IBUPROFEN [Concomitant]
     Active Substance: IBUPROFEN
     Indication: Neuralgia
  12. CETIRIZINE [Concomitant]
     Active Substance: CETIRIZINE HYDROCHLORIDE
     Indication: Rhinitis allergic
     Dates: start: 20181116, end: 20200624
  13. ACETAMINOPHEN [Concomitant]
     Active Substance: ACETAMINOPHEN
     Indication: Pyrexia
     Dates: start: 20200417, end: 20200424
  14. ZITHROMAX [Concomitant]
     Active Substance: AZITHROMYCIN DIHYDRATE
     Indication: Pyrexia
     Dates: start: 20200429, end: 20200503
  15. CIPROFLOXACIN [Concomitant]
     Active Substance: CIPROFLOXACIN
     Indication: Pyrexia
     Dates: start: 20200504, end: 20200506
  16. ENOXAPARIN [Concomitant]
     Active Substance: ENOXAPARIN
     Indication: Thrombosis prophylaxis
     Dates: start: 20200605, end: 20200608
  17. POLYETHYLENE GLYCOL [Concomitant]
     Active Substance: POLYETHYLENE GLYCOL
     Indication: Constipation
     Dates: start: 20200606, end: 20200609
  18. POLYETHYLENE GLYCOL [Concomitant]
     Active Substance: POLYETHYLENE GLYCOL
     Dates: start: 20200607, end: 20200607
  19. ERGOCALCIFEROL [Concomitant]
     Active Substance: ERGOCALCIFEROL
     Dates: start: 20200606, end: 20200606
  20. THIAMINE [Concomitant]
     Active Substance: THIAMINE
     Dates: start: 20200607, end: 20200710
  21. MAGNESIUM OXIDE [Concomitant]
     Active Substance: MAGNESIUM OXIDE
     Indication: Hypomagnesaemia
     Dates: start: 20200606, end: 20200607
  22. FLUTICASONE PROPIONATE [Concomitant]
     Active Substance: FLUTICASONE PROPIONATE
     Indication: Rhinitis allergic
     Dates: start: 20200624
  23. SULFAMETHOXAZOLE\TRIMETHOPRIM [Concomitant]
     Active Substance: SULFAMETHOXAZOLE\TRIMETHOPRIM
     Indication: Pyrexia
     Dates: start: 20200626, end: 20200705

REACTIONS (2)
  - COVID-19 [Recovered/Resolved]
  - Pneumonia [Recovered/Resolved with Sequelae]

NARRATIVE: CASE EVENT DATE: 20200417
